FAERS Safety Report 4493757-5 (Version None)
Quarter: 2004Q4

REPORT INFORMATION
  Report Type: 
  Country: None (occurrence: None)
  Receive Date: 20041103
  Receipt Date: 20041103
  Transmission Date: 20050328
  Serious: Yes (Disabling)
  Sender: FDA-Public Use
  Company Number: None

PATIENT
  Age: 57 Year
  Sex: Female
  Weight: 136.0791 kg

DRUGS (1)
  1. VIOXX [Suspect]
     Indication: KNEE ARTHROPLASTY
     Dosage: DAILY AS NEEDED

REACTIONS (1)
  - CARDIAC FLUTTER [None]
